FAERS Safety Report 8676158 (Version 4)
Quarter: 2012Q4

REPORT INFORMATION
  Report Type: 
  Country: US (occurrence: US)
  Receive Date: 20120720
  Receipt Date: 20121002
  Transmission Date: 20130627
  Serious: Yes (Hospitalization, Disabling, Other)
  Sender: FDA-Public Use
  Company Number: US-009507513-2009-190526-NL

PATIENT
  Age: 48 None
  Sex: Female
  Weight: 70.3 kg

DRUGS (2)
  1. NUVARING [Suspect]
     Indication: MENSTRUAL CYCLE MANAGEMENT
     Dosage: DOSE TEXT: 3 WEEKS IN, 1 WEEK OUT, CONTINUING: NO
     Dates: start: 20061102, end: 200702
  2. NUVARING [Suspect]
     Indication: DYSMENORRHOEA

REACTIONS (5)
  - Cerebrovascular accident [Recovering/Resolving]
  - Off label use [Unknown]
  - Periarthritis [Not Recovered/Not Resolved]
  - Enchondroma [Unknown]
  - Pyrexia [Recovered/Resolved]
